FAERS Safety Report 4438425-0 (Version None)
Quarter: 2004Q3

REPORT INFORMATION
  Report Type: 
  Country: None (occurrence: None)
  Receive Date: 20040831
  Receipt Date: 20040421
  Transmission Date: 20050211
  Serious: No
  Sender: FDA-Public Use
  Company Number: US-GLAXOSMITHKLINE-A0507906A

PATIENT
  Age: 15 Year
  Sex: Male
  Weight: 85.9 kg

DRUGS (3)
  1. WELLBUTRIN XL [Suspect]
     Indication: BIPOLAR DISORDER
     Dosage: 250MG PER DAY
     Route: 048
     Dates: start: 20030101
  2. DEPAKOTE ER [Concomitant]
     Indication: BIPOLAR DISORDER
     Dosage: 1500MG PER DAY
     Route: 048
     Dates: start: 20001231
  3. CELEXA [Concomitant]
     Indication: BIPOLAR DISORDER
     Dosage: 20MG PER DAY
     Route: 048
     Dates: start: 20010302

REACTIONS (1)
  - OSTEOPOROSIS [None]
